FAERS Safety Report 25759746 (Version 2)
Quarter: 2025Q3

REPORT INFORMATION
  Report Type: Spontaneous
  Country: US (occurrence: US)
  Receive Date: 20250904
  Receipt Date: 20250917
  Transmission Date: 20251020
  Serious: Yes (Other)
  Sender: SANOFI AVENTIS
  Company Number: US-MLMSERVICE-20250825-PI625562-00123-1

PATIENT
  Age: 62 Year
  Sex: Male

DRUGS (15)
  1. CISPLATIN [Suspect]
     Active Substance: CISPLATIN
     Indication: Myxoid liposarcoma
     Dosage: 45 MG/M2, Q4W, ON DAY 1 (EVERY 28 DAYS)
  2. CISPLATIN [Suspect]
     Active Substance: CISPLATIN
     Indication: Metastases to heart
  3. DOCETAXEL [Suspect]
     Active Substance: DOCETAXEL
     Indication: Myxoid liposarcoma
     Dosage: 75 MG/M2, Q3W , ON DAY 8 (EVERY 21 DAYS)
  4. DOCETAXEL [Suspect]
     Active Substance: DOCETAXEL
     Indication: Metastases to heart
  5. MITOMYCIN [Suspect]
     Active Substance: MITOMYCIN
     Indication: Myxoid liposarcoma
     Dosage: 6 MG/M2, Q4W, ON DAY 1 (EVERY 28 DAYS)
  6. MITOMYCIN [Suspect]
     Active Substance: MITOMYCIN
     Indication: Metastases to heart
  7. GEMCITABINE [Suspect]
     Active Substance: GEMCITABINE
     Indication: Myxoid liposarcoma
     Dosage: 900 MG/M2, Q3W, ON DAY 1 (EVERY 21 DAYS)
  8. GEMCITABINE [Suspect]
     Active Substance: GEMCITABINE
     Indication: Metastases to heart
     Dosage: 900 MG/M2, Q3W, WITH DOCETAXEL (75 MG/M2) ON DAY 8 (EVERY 21 DAYS)
  9. GEMCITABINE [Suspect]
     Active Substance: GEMCITABINE
  10. DOXORUBICIN [Suspect]
     Active Substance: DOXORUBICIN
     Indication: Myxoid liposarcoma
  11. DOXORUBICIN [Suspect]
     Active Substance: DOXORUBICIN
     Indication: Metastases to heart
  12. IFOSFAMIDE [Suspect]
     Active Substance: IFOSFAMIDE
     Indication: Myxoid liposarcoma
  13. IFOSFAMIDE [Suspect]
     Active Substance: IFOSFAMIDE
     Indication: Metastases to heart
  14. MESNA [Suspect]
     Active Substance: MESNA
     Indication: Myxoid liposarcoma
  15. MESNA [Suspect]
     Active Substance: MESNA
     Indication: Metastases to heart

REACTIONS (4)
  - Pulmonary toxicity [Unknown]
  - Pneumonitis [Unknown]
  - Inflammation [Unknown]
  - Infection [Unknown]
